FAERS Safety Report 25170534 (Version 1)
Quarter: 2025Q2

REPORT INFORMATION
  Report Type: Spontaneous
  Country: FR (occurrence: FR)
  Receive Date: 20250408
  Receipt Date: 20250408
  Transmission Date: 20250716
  Serious: Yes (Life-Threatening, Hospitalization)
  Sender: ACCORD
  Company Number: None

PATIENT
  Age: 13 Year
  Sex: Male
  Weight: 35 kg

DRUGS (16)
  1. METHOTREXATE [Suspect]
     Active Substance: METHOTREXATE
     Indication: Burkitt^s lymphoma
     Dates: start: 20250212, end: 20250212
  2. CYCLOPHOSPHAMIDE [Suspect]
     Active Substance: CYCLOPHOSPHAMIDE
     Indication: Burkitt^s lymphoma
     Dates: start: 20250212, end: 20250212
  3. VINCRISTINE SULFATE [Suspect]
     Active Substance: VINCRISTINE SULFATE
     Indication: Burkitt^s lymphoma
     Dates: start: 20250212, end: 20250212
  4. RITUXIMAB [Suspect]
     Active Substance: RITUXIMAB
     Indication: Burkitt^s lymphoma
     Dates: start: 20250217, end: 20250217
  5. HYDROCORTISONE [Suspect]
     Active Substance: HYDROCORTISONE
     Indication: Burkitt^s lymphoma
     Dates: start: 20250212, end: 20250212
  6. PREDNISONE [Suspect]
     Active Substance: PREDNISONE
     Indication: Burkitt^s lymphoma
     Dates: start: 20250212, end: 20250212
  7. METHYLPREDNISOLONE [Suspect]
     Active Substance: METHYLPREDNISOLONE
     Indication: Product used for unknown indication
     Dates: start: 20250215
  8. ALPRAZOLAM [Concomitant]
     Active Substance: ALPRAZOLAM
  9. HYDROXYZINE [Concomitant]
     Active Substance: HYDROXYZINE HYDROCHLORIDE
  10. MORPHINE [Concomitant]
     Active Substance: MORPHINE
  11. METOCLOPRAMIDE [Concomitant]
     Active Substance: METOCLOPRAMIDE
  12. ONDANSETRON [Concomitant]
     Active Substance: ONDANSETRON
  13. ACETAMINOPHEN [Concomitant]
     Active Substance: ACETAMINOPHEN
  14. TINZAPARIN SODIUM [Concomitant]
     Active Substance: TINZAPARIN SODIUM
  15. FASTURTEC [Concomitant]
     Active Substance: RASBURICASE
     Dates: start: 20250212, end: 20250212
  16. MESNA [Concomitant]
     Active Substance: MESNA
     Dates: start: 20250212, end: 20250212

REACTIONS (3)
  - Posterior reversible encephalopathy syndrome [Recovered/Resolved with Sequelae]
  - Hypertension [Recovered/Resolved]
  - Inappropriate antidiuretic hormone secretion [Recovered/Resolved with Sequelae]

NARRATIVE: CASE EVENT DATE: 20250215
